FAERS Safety Report 18168574 (Version 1)
Quarter: 2020Q3

REPORT INFORMATION
  Report Type: Spontaneous
  Country: CN (occurrence: CN)
  Receive Date: 20200819
  Receipt Date: 20200819
  Transmission Date: 20201103
  Serious: Yes (Hospitalization, Other)
  Sender: FDA-Public Use
  Company Number: CN-MACLEODS PHARMACEUTICALS US LTD-MAC2020027711

PATIENT

DRUGS (3)
  1. FLUOXETINE [Interacting]
     Active Substance: FLUOXETINE HYDROCHLORIDE
     Indication: DEPRESSION
     Dosage: 20 MILLIGRAM, QD, CAPSULE
     Route: 065
     Dates: start: 201812, end: 201903
  2. CELECOXIB CAPSULE [Interacting]
     Active Substance: CELECOXIB
     Indication: ARTHRALGIA
     Dosage: 200 MILLIGRAM, QD, CAPSULE
     Route: 065
     Dates: start: 2019, end: 201903
  3. CELECOXIB CAPSULE [Suspect]
     Active Substance: CELECOXIB
     Indication: OSTEOARTHRITIS
     Dosage: UNK, CAPSULE
     Route: 065
     Dates: start: 2016, end: 2019

REACTIONS (5)
  - Cholecystitis [Recovered/Resolved]
  - Idiosyncratic drug reaction [Recovered/Resolved]
  - Jaundice [Recovered/Resolved]
  - Drug-induced liver injury [Recovered/Resolved]
  - Drug interaction [Recovered/Resolved]

NARRATIVE: CASE EVENT DATE: 201903
